FAERS Safety Report 14910782 (Version 1)
Quarter: 2018Q2

REPORT INFORMATION
  Report Type: Spontaneous
  Country: US (occurrence: US)
  Receive Date: 20180517
  Receipt Date: 20180517
  Transmission Date: 20180711
  Serious: No
  Sender: FDA-Public Use
  Company Number: US-SYNERGY PHARMACEUTICALS INC-US-2018SNG000030

PATIENT

DRUGS (1)
  1. TRULANCE [Suspect]
     Active Substance: PLECANATIDE
     Indication: NEUROMYELITIS OPTICA SPECTRUM DISORDER
     Dosage: 3 MG, QD
     Route: 048

REACTIONS (2)
  - Faecaloma [Unknown]
  - Product use in unapproved indication [Unknown]
